FAERS Safety Report 6547279-8 (Version None)
Quarter: 2010Q1

REPORT INFORMATION
  Report Type: 
  Country: None (occurrence: None)
  Receive Date: 20100122
  Receipt Date: 20100115
  Transmission Date: 20100710
  Serious: Yes (Hospitalization)
  Sender: FDA-Public Use
  Company Number: FR-TEVA-192508ISR

PATIENT
  Sex: Male

DRUGS (5)
  1. FLUOROURACIL [Suspect]
     Indication: COLORECTAL CANCER
     Route: 040
     Dates: start: 20080225, end: 20080630
  2. FLUOROURACIL [Suspect]
     Route: 041
  3. FOLINIC ACID [Suspect]
     Indication: COLORECTAL CANCER
     Route: 040
     Dates: start: 20080225, end: 20080630
  4. BEVACIZUMAB [Suspect]
     Indication: COLORECTAL CANCER
     Dates: start: 20080225, end: 20080630
  5. IRINOTECAN HCL [Suspect]
     Indication: COLORECTAL CANCER
     Dates: start: 20080225, end: 20080630

REACTIONS (1)
  - PULMONARY EMBOLISM [None]
